FAERS Safety Report 21548923 (Version 1)
Quarter: 2022Q4

REPORT INFORMATION
  Report Type: Spontaneous
  Country: US (occurrence: US)
  Receive Date: 20221103
  Receipt Date: 20221103
  Transmission Date: 20230113
  Serious: No
  Sender: FDA-Public Use
  Company Number: US-BRISTOL-MYERS SQUIBB COMPANY-2022-131914

PATIENT
  Age: 77 Year
  Sex: Female

DRUGS (1)
  1. REVLIMID [Suspect]
     Active Substance: LENALIDOMIDE
     Indication: Product used for unknown indication
     Dosage: 1 DF: 1 CAPSULE?FREQ: TAKE 1 CAPSULE BY MOUTH ONCE DAILY WHOLE W/ WATER FOR 21 DAYS THEN OFF FOR 7 D
     Route: 048
     Dates: start: 20160121

REACTIONS (1)
  - Product dose omission issue [Unknown]
